FAERS Safety Report 10763140 (Version 3)
Quarter: 2015Q1

REPORT INFORMATION
  Report Type: Spontaneous
  Country: JP (occurrence: JP)
  Receive Date: 20150204
  Receipt Date: 20150323
  Transmission Date: 20150721
  Serious: Yes (Other)
  Sender: FDA-Public Use
  Company Number: JP-PFIZER INC-2014317142

PATIENT
  Age: 73 Year
  Sex: Female

DRUGS (10)
  1. TRAMCET [Concomitant]
     Active Substance: ACETAMINOPHEN\TRAMADOL
     Dosage: UNK, 1X/DAY
     Route: 048
     Dates: end: 20141023
  2. MERISLON [Concomitant]
     Active Substance: BETAHISTINE MESILATE
     Dosage: 6 MG, 3X/DAY
     Route: 048
  3. LYRICA [Suspect]
     Active Substance: PREGABALIN
     Dosage: 25 MG, DAILY
     Route: 048
     Dates: start: 20141106, end: 20141117
  4. MUCOSTA [Concomitant]
     Active Substance: REBAMIPIDE
     Dosage: UNK, 2X/DAY
     Dates: start: 20141030, end: 20141117
  5. LOXONIN [Concomitant]
     Active Substance: LOXOPROFEN SODIUM
     Dosage: UNK UNK, 3X/DAY
     Route: 048
     Dates: end: 20141030
  6. CALLBLOCK [Concomitant]
     Dosage: 16 MG, 1X/DAY
     Route: 048
  7. LIPITOR [Concomitant]
     Active Substance: ATORVASTATIN CALCIUM
     Dosage: 5 MG, 1X/DAY
     Route: 048
  8. CELECOX [Suspect]
     Active Substance: CELECOXIB
     Dosage: 100 MG, 2X/DAY
     Route: 048
     Dates: start: 20141030, end: 20141117
  9. TRAMCET [Concomitant]
     Active Substance: ACETAMINOPHEN\TRAMADOL
     Dosage: UNK, 2X/DAY
     Route: 048
     Dates: start: 20141024, end: 20141106
  10. CARDENALIN [Concomitant]
     Active Substance: DOXAZOSIN MESYLATE
     Dosage: 4 MG, 1X/DAY
     Route: 048

REACTIONS (1)
  - Drug eruption [Unknown]

NARRATIVE: CASE EVENT DATE: 20141117
